FAERS Safety Report 8166204-X (Version None)
Quarter: 2012Q1

REPORT INFORMATION
  Report Type: 
  Country: None (occurrence: None)
  Receive Date: 20120227
  Receipt Date: 20110531
  Transmission Date: 20120608
  Serious: No
  Sender: FDA-Public Use
  Company Number: US-MYLANLABS-2011S1009209

PATIENT
  Age: 42 Year
  Sex: Male

DRUGS (2)
  1. AMNESTEEM [Suspect]
     Route: 048
  2. AMNESTEEM [Suspect]
     Route: 048

REACTIONS (3)
  - HEPATIC ENZYME ABNORMAL [None]
  - FATIGUE [None]
  - ADVERSE EVENT [None]
